FAERS Safety Report 23811057 (Version 2)
Quarter: 2024Q2

REPORT INFORMATION
  Report Type: Report from Study
  Country: FR (occurrence: None)
  Receive Date: 20240502
  Receipt Date: 20240521
  Transmission Date: 20240716
  Serious: Yes (Other)
  Sender: FDA-Public Use
  Company Number: 2023A112733

PATIENT
  Sex: Female
  Weight: 58 kg

DRUGS (12)
  1. IMFINZI [Suspect]
     Active Substance: DURVALUMAB
     Indication: Hepatobiliary cancer
     Route: 042
     Dates: start: 20230412
  2. IMFINZI [Suspect]
     Active Substance: DURVALUMAB
     Indication: Hepatobiliary cancer
     Route: 042
     Dates: start: 20230510
  3. IMFINZI [Suspect]
     Active Substance: DURVALUMAB
     Indication: Hepatobiliary cancer
     Route: 042
     Dates: start: 20230531
  4. IMFINZI [Suspect]
     Active Substance: DURVALUMAB
     Indication: Hepatobiliary cancer
     Route: 042
     Dates: start: 20230719
  5. IMFINZI [Suspect]
     Active Substance: DURVALUMAB
     Indication: Hepatobiliary cancer
     Route: 042
     Dates: start: 20231011
  6. IMFINZI [Suspect]
     Active Substance: DURVALUMAB
     Indication: Hepatobiliary cancer
     Route: 042
     Dates: start: 20240306
  7. CISPLATIN/GEMCITABINE [Concomitant]
     Indication: Hepatobiliary cancer
     Dosage: EVERY THREE WEEKS
     Dates: start: 20230412
  8. CISPLATIN/GEMCITABINE [Concomitant]
     Indication: Hepatobiliary cancer
     Dosage: EVERY THREE WEEKS
     Dates: start: 20230510
  9. CISPLATIN/GEMCITABINE [Concomitant]
     Indication: Hepatobiliary cancer
     Dosage: EVERY THREE WEEKS
     Dates: start: 20230531
  10. CISPLATIN/GEMCITABINE [Concomitant]
     Indication: Hepatobiliary cancer
     Dosage: EVERY THREE WEEKS
     Dates: start: 20230719
  11. CISPLATIN/GEMCITABINE [Concomitant]
     Indication: Hepatobiliary cancer
     Dosage: EVERY THREE WEEKS
     Dates: start: 20231011
  12. CISPLATIN/GEMCITABINE [Concomitant]
     Indication: Hepatobiliary cancer
     Dosage: EVERY THREE WEEKS
     Dates: start: 20240306

REACTIONS (3)
  - Bone marrow failure [Recovered/Resolved]
  - Thrombocytopenia [Recovered/Resolved]
  - Off label use [Unknown]
